FAERS Safety Report 11417589 (Version 1)
Quarter: 2015Q3

REPORT INFORMATION
  Report Type: Spontaneous
  Country: US (occurrence: US)
  Receive Date: 20150825
  Receipt Date: 20150825
  Transmission Date: 20151125
  Serious: No
  Sender: FDA-Public Use
  Company Number: US-TARO-2014TAR00233

PATIENT
  Age: 82 Year
  Sex: Female
  Weight: 53.52 kg

DRUGS (5)
  1. CLOBETASOL PROPIONATE OINTMENT USP 0.05% [Suspect]
     Active Substance: CLOBETASOL PROPIONATE
     Indication: NEURODERMATITIS
     Dosage: UNK
     Route: 061
     Dates: start: 201012
  2. LOSARTAN. [Concomitant]
     Active Substance: LOSARTAN
  3. CLOBETASOL PROPIONATE OINTMENT USP 0.05% [Suspect]
     Active Substance: CLOBETASOL PROPIONATE
     Dosage: UNK, 1X/DAY
     Route: 061
     Dates: start: 201408, end: 20140808
  4. DIAZEPAM. [Concomitant]
     Active Substance: DIAZEPAM
  5. CLOBETASOL PROPIONATE OINTMENT USP 0.05% [Suspect]
     Active Substance: CLOBETASOL PROPIONATE
     Dosage: UNK
     Dates: start: 201408

REACTIONS (1)
  - Nausea [Not Recovered/Not Resolved]

NARRATIVE: CASE EVENT DATE: 20140807
